FAERS Safety Report 13732672 (Version 1)
Quarter: 2017Q3

REPORT INFORMATION
  Report Type: Spontaneous
  Country: FR (occurrence: FR)
  Receive Date: 20170707
  Receipt Date: 20170707
  Transmission Date: 20171127
  Serious: Yes (Hospitalization)
  Sender: FDA-Public Use
  Company Number: PHHY2017FR095019

PATIENT
  Age: 71 Year
  Sex: Male

DRUGS (9)
  1. BACTRIMEL FORTE [Suspect]
     Active Substance: SULFAMETHOXAZOLE\TRIMETHOPRIM
     Indication: PROPHYLAXIS
     Dosage: 1 DF, TIW
     Route: 048
     Dates: start: 20170519, end: 20170615
  2. VANCOMYCIN SANDOZ [Suspect]
     Active Substance: VANCOMYCIN
     Indication: VASCULAR ACCESS SITE INFECTION
     Dosage: 2.5 G, QD
     Route: 042
     Dates: start: 20170530, end: 20170606
  3. CYTARABINE EBEWE [Suspect]
     Active Substance: CYTARABINE
     Indication: ACUTE LEUKAEMIA
     Dosage: 175 MG, QD
     Route: 042
     Dates: start: 20170523, end: 20170529
  4. ZAVEDOS [Suspect]
     Active Substance: IDARUBICIN
     Indication: ACUTE LEUKAEMIA
     Dosage: 14 MG, UNK
     Route: 042
     Dates: start: 20170523, end: 20170529
  5. STROMECTOL [Suspect]
     Active Substance: IVERMECTIN
     Dosage: 18 MG, ONCE/SINGLE
     Route: 048
     Dates: start: 20170602
  6. VANCOMYCIN SANDOZ [Suspect]
     Active Substance: VANCOMYCIN
     Dosage: REINTRODUCED
     Route: 065
     Dates: start: 20170615, end: 20170616
  7. CEFEPIME [Suspect]
     Active Substance: CEFEPIME HYDROCHLORIDE
     Indication: VASCULAR ACCESS SITE INFECTION
     Dosage: 6 G, QD
     Route: 042
     Dates: start: 20170526, end: 20170607
  8. STROMECTOL [Suspect]
     Active Substance: IVERMECTIN
     Indication: PROPHYLAXIS
     Dosage: 18 MG, ONCE/SINGLE
     Route: 048
     Dates: start: 20170520
  9. ZAVEDOS [Suspect]
     Active Substance: IDARUBICIN
     Dosage: 14 MG, UNK
     Route: 042
     Dates: start: 20170523, end: 20170529

REACTIONS (1)
  - Rash maculo-papular [Recovering/Resolving]

NARRATIVE: CASE EVENT DATE: 20170609
